FAERS Safety Report 15833869 (Version 1)
Quarter: 2019Q1

REPORT INFORMATION
  Report Type: Spontaneous
  Country: US (occurrence: US)
  Receive Date: 20190116
  Receipt Date: 20190116
  Transmission Date: 20190417
  Serious: Yes (Disabling, Other)
  Sender: FDA-Public Use
  Company Number: US-ENDO PHARMACEUTICALS INC-2018-040242

PATIENT
  Sex: Male

DRUGS (1)
  1. HYDROCODONE BITARTRATE AND ACETAMINOPHEN [Suspect]
     Active Substance: ACETAMINOPHEN\HYDROCODONE BITARTRATE
     Indication: PAIN
     Dosage: UNK UNKNOWN, UNKNOWN (4 TIMES A DAY)
     Route: 048
     Dates: start: 2011

REACTIONS (7)
  - Dependence [Not Recovered/Not Resolved]
  - Drug abuse [Unknown]
  - Depression [Not Recovered/Not Resolved]
  - Anger [Not Recovered/Not Resolved]
  - Pain [Unknown]
  - Amnesia [Not Recovered/Not Resolved]
  - Mental status changes [Unknown]
